FAERS Safety Report 12421741 (Version 2)
Quarter: 2016Q2

REPORT INFORMATION
  Report Type: Report from Study
  Country: US (occurrence: US)
  Receive Date: 20160531
  Receipt Date: 20160603
  Transmission Date: 20160815
  Serious: Yes (Other)
  Sender: FDA-Public Use
  Company Number: PHEH2016US013253

PATIENT
  Sex: Female

DRUGS (2)
  1. ILARIS [Suspect]
     Active Substance: CANAKINUMAB
     Dosage: EVERY 4 WEEKS
     Route: 058
     Dates: start: 20160427
  2. ILARIS [Suspect]
     Active Substance: CANAKINUMAB
     Indication: PRODUCT USED FOR UNKNOWN INDICATION
     Dosage: 600 MG, (EVERY 4 WEEKS)
     Route: 058

REACTIONS (5)
  - Urinary tract infection [Unknown]
  - Kidney infection [Unknown]
  - Malaise [Unknown]
  - Pyrexia [Unknown]
  - Inappropriate schedule of drug administration [Unknown]
